FAERS Safety Report 25389923 (Version 1)
Quarter: 2025Q2

REPORT INFORMATION
  Report Type: Spontaneous
  Country: KW (occurrence: None)
  Receive Date: 20250603
  Receipt Date: 20250603
  Transmission Date: 20250717
  Serious: Yes (Hospitalization, Other)
  Sender: INCYTE
  Company Number: KW-002147023-NVSC2025KW086524

PATIENT
  Age: 35 Year

DRUGS (1)
  1. RUXOLITINIB [Suspect]
     Active Substance: RUXOLITINIB
     Indication: Graft versus host disease
     Dosage: 10 MG, BID
     Route: 065

REACTIONS (7)
  - Oxygen saturation decreased [Unknown]
  - Dyspnoea [Unknown]
  - Candida infection [Unknown]
  - Influenza B virus test positive [Unknown]
  - Respiratory failure [Unknown]
  - Chronic graft versus host disease [Unknown]
  - Hypercapnia [Unknown]
